FAERS Safety Report 25188914 (Version 1)
Quarter: 2025Q2

REPORT INFORMATION
  Report Type: Spontaneous
  Country: US (occurrence: US)
  Receive Date: 20250411
  Receipt Date: 20250411
  Transmission Date: 20250717
  Serious: No
  Sender: DR REDDYS
  Company Number: US-DRL-USA-USA/2025/03/004768

PATIENT
  Age: 37 Year
  Sex: Female
  Weight: 53.52 kg

DRUGS (1)
  1. ATOMOXETINE [Suspect]
     Active Substance: ATOMOXETINE
     Indication: Attention deficit hyperactivity disorder
     Dosage: 30 COUNT
     Route: 048

REACTIONS (10)
  - Fatigue [Unknown]
  - Lethargy [Unknown]
  - Chills [Unknown]
  - Hyperhidrosis [Unknown]
  - Anxiety [Unknown]
  - Nausea [Unknown]
  - Headache [Unknown]
  - Urticaria [Unknown]
  - Dyspnoea [Unknown]
  - Mental impairment [Unknown]
